FAERS Safety Report 10035957 (Version 3)
Quarter: 2014Q2

REPORT INFORMATION
  Report Type: Report from Study
  Country: JP (occurrence: JP)
  Receive Date: 20140325
  Receipt Date: 20140502
  Transmission Date: 20141212
  Serious: Yes (Other)
  Sender: FDA-Public Use
  Company Number: JP-CUBIST PHARMACEUTICAL, INC.-2013CBST000957

PATIENT
  Sex: 0

DRUGS (10)
  1. CUBICIN [Suspect]
     Indication: STAPHYLOCOCCAL SKIN INFECTION
     Dosage: 5.6 MG/KG, ONCE A DAY
     Route: 042
     Dates: start: 20130524, end: 20130524
  2. CUBICIN [Suspect]
     Indication: SOFT TISSUE INFECTION
  3. METILON [Concomitant]
     Indication: PRODUCT USED FOR UNKNOWN INDICATION
     Dosage: 1 ML, BID
     Route: 051
     Dates: start: 20130524, end: 20130524
  4. VANCOMYCIN [Concomitant]
     Indication: STAPHYLOCOCCAL SKIN INFECTION
     Dosage: 1 DF, ONCE DAILY
     Route: 051
     Dates: start: 20130524, end: 20130525
  5. PRECEDEX [Concomitant]
     Indication: PRODUCT USED FOR UNKNOWN INDICATION
     Dosage: 2 ML, ONCE DAILY
     Route: 051
     Dates: start: 20130524, end: 20130524
  6. ZOSYN [Concomitant]
     Indication: STAPHYLOCOCCAL SKIN INFECTION
     Dosage: 4.5 G, ONCE DAILY
     Route: 051
     Dates: start: 20130524, end: 20130524
  7. ANTHROBIN P [Concomitant]
     Indication: PRODUCT USED FOR UNKNOWN INDICATION
     Dosage: 1.5 (THOUSAND-MILLION UNIT), ONCE DAILY
     Route: 051
     Dates: start: 20130524, end: 20130524
  8. SOLU MEDROL [Concomitant]
     Indication: PRODUCT USED FOR UNKNOWN INDICATION
     Dosage: 500 MG, ONCE DAILY
     Route: 051
     Dates: start: 20130524, end: 20130526
  9. ATARAX-P                           /00058402/ [Concomitant]
     Indication: PRODUCT USED FOR UNKNOWN INDICATION
     Dosage: 1 (UNDER 1000 UNIT), BID
     Route: 051
     Dates: start: 20130524, end: 20130525
  10. PLETAAL [Concomitant]
     Indication: PRODUCT USED FOR UNKNOWN INDICATION
     Dosage: 100 MG, BID
     Route: 048
     Dates: start: 20130524

REACTIONS (4)
  - Pyrexia [Recovered/Resolved]
  - C-reactive protein increased [Unknown]
  - Overdose [Unknown]
  - Drug ineffective [Unknown]
